FAERS Safety Report 8187459-1 (Version None)
Quarter: 2012Q1

REPORT INFORMATION
  Report Type: 
  Country: None (occurrence: None)
  Receive Date: 20120302
  Receipt Date: 20120217
  Transmission Date: 20120608
  Serious: No
  Sender: FDA-Public Use
  Company Number: TCI2012A00771

PATIENT
  Age: 35 Year
  Sex: Male

DRUGS (1)
  1. ACTOS [Suspect]
     Route: 048
     Dates: start: 20090701, end: 20101101

REACTIONS (1)
  - NEUROLEPTIC MALIGNANT SYNDROME [None]
